FAERS Safety Report 5813339-X (Version None)
Quarter: 2008Q3

REPORT INFORMATION
  Report Type: 
  Country: None (occurrence: None)
  Receive Date: 20080717
  Receipt Date: 20080714
  Transmission Date: 20090109
  Serious: Yes (Death, Other)
  Sender: FDA-Public Use
  Company Number: NL-BRISTOL-MYERS SQUIBB COMPANY-14264113

PATIENT
  Age: 68 Year
  Sex: Female

DRUGS (5)
  1. CISPLATIN [Suspect]
     Indication: NON-SMALL CELL LUNG CANCER
  2. GEMCITABINE [Suspect]
  3. INSULIN [Concomitant]
  4. METFORMIN [Concomitant]
  5. ATORVASTATIN CALCIUM [Concomitant]

REACTIONS (5)
  - CEREBRAL INFARCTION [None]
  - DEATH [None]
  - DIARRHOEA [None]
  - NAUSEA [None]
  - VOMITING [None]
